FAERS Safety Report 10210951 (Version 1)
Quarter: 2014Q2

REPORT INFORMATION
  Report Type: Spontaneous
  Country: US (occurrence: None)
  Receive Date: 20140528
  Receipt Date: 20140528
  Transmission Date: 20141212
  Serious: Yes (Hospitalization)
  Sender: FDA-Public Use
  Company Number: SYM-2014-21215

PATIENT
  Age: 66 Year
  Sex: Male

DRUGS (4)
  1. WELLBUTRIN [Suspect]
     Indication: DEPRESSION
     Route: 048
  2. AMPYRA [Suspect]
     Indication: GAIT DISTURBANCE
     Dosage: 20MG, 1 IN 12HR, ORAL
     Route: 048
     Dates: start: 20130215, end: 20140404
  3. AMPYRA [Suspect]
     Indication: MUSCULAR WEAKNESS
     Dosage: 20MG, 1 IN 12HR, ORAL
     Route: 048
     Dates: start: 20130215, end: 20140404
  4. LISINOPRIL (LISINOPRIL) [Concomitant]

REACTIONS (10)
  - Mania [None]
  - Delusion [None]
  - Fall [None]
  - Asthenia [None]
  - Muscular weakness [None]
  - Condition aggravated [None]
  - Drug interaction [None]
  - Drug dose omission [None]
  - Drug ineffective [None]
  - Mobility decreased [None]
